FAERS Safety Report 6118781-8 (Version None)
Quarter: 2009Q1

REPORT INFORMATION
  Report Type: 
  Country: None (occurrence: None)
  Receive Date: 20090314
  Receipt Date: 20090226
  Transmission Date: 20090719
  Serious: No
  Sender: FDA-Public Use
  Company Number: US-ABBOTT-09P-163-0560061-00

PATIENT
  Sex: Female
  Weight: 72.64 kg

DRUGS (9)
  1. HUMIRA [Suspect]
     Indication: CROHN'S DISEASE
     Route: 058
     Dates: start: 20080904, end: 20090101
  2. HUMIRA [Suspect]
     Route: 058
     Dates: start: 20090122, end: 20090216
  3. HYDROCHLOROTHIAZIDE [Concomitant]
     Indication: HYPERTENSION
     Route: 048
  4. LOPRESSOR [Concomitant]
     Indication: HYPERTENSION
     Route: 048
  5. ASPIRIN [Concomitant]
     Indication: DRUG USE FOR UNKNOWN INDICATION
     Route: 048
  6. CALCIUM [Concomitant]
     Indication: MINERAL SUPPLEMENTATION
     Route: 048
  7. PRILOSEC [Concomitant]
     Indication: GASTROOESOPHAGEAL REFLUX DISEASE
     Route: 048
  8. KDUR [Concomitant]
     Indication: MINERAL SUPPLEMENTATION
     Route: 048
  9. VITAMIN D [Concomitant]
     Indication: VITAMIN SUPPLEMENTATION
     Dosage: 50,000U
     Route: 048

REACTIONS (3)
  - DERMATITIS [None]
  - ECZEMA [None]
  - RASH ERYTHEMATOUS [None]
